FAERS Safety Report 11990513 (Version 1)
Quarter: 2016Q1

REPORT INFORMATION
  Report Type: Spontaneous
  Country: US (occurrence: US)
  Receive Date: 20160202
  Receipt Date: 20160202
  Transmission Date: 20160526
  Serious: No
  Sender: FDA-Public Use
  Company Number: US-009507513-1601USA011526

PATIENT
  Sex: Male

DRUGS (14)
  1. IRON (UNSPECIFIED) [Concomitant]
     Active Substance: IRON
  2. REMERON [Concomitant]
     Active Substance: MIRTAZAPINE
  3. RISPERIDONE. [Concomitant]
     Active Substance: RISPERIDONE
  4. MORPHINE SULFATE. [Concomitant]
     Active Substance: MORPHINE SULFATE
  5. OXYCODONE [Concomitant]
     Active Substance: OXYCODONE
  6. IBUPROFEN. [Concomitant]
     Active Substance: IBUPROFEN
  7. ASPIRIN. [Concomitant]
     Active Substance: ASPIRIN
  8. VENTOLIN [Concomitant]
     Active Substance: ALBUTEROL SULFATE
  9. PRILOSEC [Concomitant]
     Active Substance: OMEPRAZOLE MAGNESIUM
  10. VITAMINS (UNSPECIFIED) [Concomitant]
     Active Substance: VITAMINS
  11. ZOCOR [Concomitant]
     Active Substance: SIMVASTATIN
  12. CLONAZEPAM. [Concomitant]
     Active Substance: CLONAZEPAM
  13. DIFICID [Suspect]
     Active Substance: FIDAXOMICIN
     Indication: CLOSTRIDIUM DIFFICILE COLITIS
     Dosage: 1 TABLET TWICE DAILY FOR 10 DAYS
     Route: 048
  14. DIFICID [Suspect]
     Active Substance: FIDAXOMICIN
     Dosage: UNK
     Route: 048
     Dates: start: 20121214

REACTIONS (1)
  - Clostridium difficile infection [Unknown]
